FAERS Safety Report 24617058 (Version 1)
Quarter: 2024Q4

REPORT INFORMATION
  Report Type: Report from Study
  Country: NL (occurrence: NL)
  Receive Date: 20241114
  Receipt Date: 20241114
  Transmission Date: 20250115
  Serious: Yes (Life-Threatening, Hospitalization)
  Sender: ABBVIE
  Company Number: NL-ABBVIE-6004282

PATIENT
  Age: 71 Year
  Sex: Female

DRUGS (8)
  1. CARBIDOPA\LEVODOPA [Suspect]
     Active Substance: CARBIDOPA\LEVODOPA
     Indication: Parkinson^s disease
     Dosage: MD: 13.9ML, CD: 3.1ML/H, ED: 2.5ML, END: 2.5ML, CND: 1.6ML/H, DURATION TEXT: GOES TO 24 HOURS
     Route: 050
     Dates: start: 20240614, end: 20240827
  2. CARBIDOPA\LEVODOPA [Suspect]
     Active Substance: CARBIDOPA\LEVODOPA
     Dosage: CD: 3.4ML/H
     Route: 050
     Dates: start: 20241108, end: 20241112
  3. CARBIDOPA\LEVODOPA [Suspect]
     Active Substance: CARBIDOPA\LEVODOPA
     Dosage: MD: 13.9ML, CD: 3.1ML/H, ED: 2.5ML, END: 2.5ML
     Route: 050
     Dates: start: 20240827, end: 20241108
  4. CARBIDOPA\LEVODOPA [Suspect]
     Active Substance: CARBIDOPA\LEVODOPA
     Dosage: DURATION TEXT: GOES TO 24 HOURS
     Route: 050
     Dates: start: 20220131
  5. CARBIDOPA\LEVODOPA [Suspect]
     Active Substance: CARBIDOPA\LEVODOPA
     Dosage: MD: 13.9ML, CD: 3.5ML/H, ED: 2.5ML, DURATION TEXT: REMAINS AT 16 HOURS
     Route: 050
     Dates: start: 20241112
  6. MOVICOLON [Concomitant]
     Active Substance: POLYETHYLENE GLYCOL 3350\POTASSIUM CHLORIDE\SODIUM BICARBONATE\SODIUM CHLORIDE
     Indication: Gastrointestinal motility disorder
  7. BENSERAZIDE HYDROCHLORIDE\LEVODOPA [Concomitant]
     Active Substance: BENSERAZIDE HYDROCHLORIDE\LEVODOPA
     Indication: Parkinson^s disease
     Dosage: FORM STRENGTH: 125, FORM STRENGTH UNITS: MILLIGRAM
     Route: 048
     Dates: start: 20190101
  8. CARBIDOPA\ENTACAPONE\LEVODOPA [Concomitant]
     Active Substance: CARBIDOPA\ENTACAPONE\LEVODOPA
     Indication: Product used for unknown indication
     Dates: start: 20190801

REACTIONS (2)
  - Asthenia [Not Recovered/Not Resolved]
  - Parkinson^s disease [Not Recovered/Not Resolved]
